FAERS Safety Report 22174143 (Version 3)
Quarter: 2023Q2

REPORT INFORMATION
  Report Type: Report from Study
  Country: DE (occurrence: DE)
  Receive Date: 20230405
  Receipt Date: 20230601
  Transmission Date: 20230722
  Serious: Yes (Hospitalization, Other)
  Sender: FDA-Public Use
  Company Number: DE-KYOWAKIRIN-2023BKK004964

PATIENT

DRUGS (21)
  1. MOGAMULIZUMAB [Suspect]
     Active Substance: MOGAMULIZUMAB
     Indication: Cutaneous T-cell lymphoma
     Dosage: 73 MG, 1 MG/KG, CYCLE 1 DAY 1
     Route: 065
     Dates: start: 20220819
  2. MOGAMULIZUMAB [Suspect]
     Active Substance: MOGAMULIZUMAB
     Dosage: 73 MG, 1 MG/KG, CYCLE 1 DAY 8
     Route: 065
     Dates: start: 20220826
  3. MOGAMULIZUMAB [Suspect]
     Active Substance: MOGAMULIZUMAB
     Dosage: UNK, 1 MG/KG, CYCLE 1 DAY 15
     Route: 065
     Dates: start: 20220902
  4. MOGAMULIZUMAB [Suspect]
     Active Substance: MOGAMULIZUMAB
     Dosage: UNK, 1 MG/KG, CYCLE 1 DAY 22
     Route: 065
     Dates: start: 20220916
  5. MOGAMULIZUMAB [Suspect]
     Active Substance: MOGAMULIZUMAB
     Dosage: UNK, 1 MG/KG, CYCLE 2 DAY 1
     Route: 065
     Dates: start: 20220930
  6. MOGAMULIZUMAB [Suspect]
     Active Substance: MOGAMULIZUMAB
     Dosage: UNK, 1 MG/KG, CYCLE 2 DAY 15
     Route: 065
     Dates: start: 20221013
  7. MOGAMULIZUMAB [Suspect]
     Active Substance: MOGAMULIZUMAB
     Dosage: UNK, 1 MG/KG, CYCLE 3 DAY 1
     Route: 065
     Dates: start: 20221028
  8. MOGAMULIZUMAB [Suspect]
     Active Substance: MOGAMULIZUMAB
     Dosage: UNK, 1 MG/KG, CYCLE 3 DAY 15
     Route: 065
     Dates: start: 20221111
  9. MOGAMULIZUMAB [Suspect]
     Active Substance: MOGAMULIZUMAB
     Dosage: UNK, 1 MG/KG, CYCLE 4 DAY 1
     Route: 065
     Dates: start: 20221209
  10. MOGAMULIZUMAB [Suspect]
     Active Substance: MOGAMULIZUMAB
     Dosage: UNK, 1 MG/KG, CYCLE 4 DAY 15
     Route: 065
     Dates: start: 20221216
  11. MOGAMULIZUMAB [Suspect]
     Active Substance: MOGAMULIZUMAB
     Dosage: UNK, 1 MG/KG, CYCLE 5 DAY 1
     Route: 065
     Dates: start: 20230116
  12. MOGAMULIZUMAB [Suspect]
     Active Substance: MOGAMULIZUMAB
     Dosage: UNK, 1 MG/KG, CYCLE 5 DAY 15
     Route: 065
     Dates: start: 20230224
  13. ALLOPURINOL [Concomitant]
     Active Substance: ALLOPURINOL
     Indication: Product used for unknown indication
     Dosage: 100 MG, QD
     Route: 065
  14. METOCLOPRAMIDE [Concomitant]
     Active Substance: METOCLOPRAMIDE
     Indication: Product used for unknown indication
     Dosage: 10 MG, PRN
     Route: 065
  15. METAMIZOLE SODIUM [Concomitant]
     Active Substance: METAMIZOLE SODIUM
     Indication: Product used for unknown indication
     Dosage: 500 MG, PRN
     Route: 065
  16. LORAZEPAM [Concomitant]
     Active Substance: LORAZEPAM
     Indication: Prophylaxis
     Dosage: 1 MG, QD
     Route: 065
  17. DIMENHYDRINATE [Concomitant]
     Active Substance: DIMENHYDRINATE
     Indication: Product used for unknown indication
     Dosage: 50 MG, PRN
     Route: 065
  18. DEXPANTHENOL [Concomitant]
     Active Substance: DEXPANTHENOL
     Indication: Product used for unknown indication
     Dosage: 50 MG, TID
     Route: 065
  19. FEXOFENADINE HYDROCHLORIDE [Concomitant]
     Active Substance: FEXOFENADINE HYDROCHLORIDE
     Indication: Product used for unknown indication
     Dosage: 180 MG, QD
     Route: 065
     Dates: start: 20210812
  20. HOMEOPATHICS [Concomitant]
     Active Substance: ARNICA MONTANA\CAUSTICUM\COMFREY ROOT\HOMEOPATHICS\LEDUM PALUSTRE TWIG\PSEUDOGNAPHALIUM OBTUSIFOLIUM
     Indication: Product used for unknown indication
     Dosage: 2.4, QD
     Route: 065
     Dates: start: 20210812
  21. LINIMENTUM SCABICIDUM [Concomitant]
     Indication: Product used for unknown indication
     Dosage: 1.75 MG, PRN
     Route: 065
     Dates: start: 20211123

REACTIONS (1)
  - Dermatitis exfoliative generalised [Not Recovered/Not Resolved]

NARRATIVE: CASE EVENT DATE: 20221130
